FAERS Safety Report 5712375-1 (Version None)
Quarter: 2008Q2

REPORT INFORMATION
  Report Type: 
  Country: None (occurrence: None)
  Receive Date: 20080418
  Receipt Date: 20080407
  Transmission Date: 20081010
  Serious: Yes (Hospitalization)
  Sender: FDA-Public Use
  Company Number: 2008BI007752

PATIENT
  Age: 58 Year
  Sex: Female

DRUGS (17)
  1. AVONEX [Suspect]
     Indication: MULTIPLE SCLEROSIS
     Dosage: 30 UG;QW; IM
     Route: 030
     Dates: start: 20030101
  2. NEXIUM [Concomitant]
  3. CLONAZEPAM [Concomitant]
  4. NAMENDA [Concomitant]
  5. PLAVIX [Concomitant]
  6. NITROGLYCERIN [Concomitant]
  7. VYTORIN [Concomitant]
  8. AMIODARONE HCL [Concomitant]
  9. LASIX [Concomitant]
  10. ISOSORBIDE DINITRATE [Concomitant]
  11. COREG CR [Concomitant]
  12. ASPIRIN [Concomitant]
  13. ADVAIR HFA [Concomitant]
  14. WELLBUTRIN [Concomitant]
  15. ALBUTEROL [Concomitant]
  16. SPIRIVA [Concomitant]
  17. SINGULAIR [Concomitant]

REACTIONS (19)
  - ASTHENIA [None]
  - BLOOD DISORDER [None]
  - CELLULITIS [None]
  - COLITIS [None]
  - DIVERTICULITIS [None]
  - ERYTHEMA [None]
  - ESCHERICHIA SEPSIS [None]
  - ESCHERICHIA URINARY TRACT INFECTION [None]
  - HYPOALBUMINAEMIA [None]
  - HYPOKALAEMIA [None]
  - HYPOTENSION [None]
  - HYPOVOLAEMIA [None]
  - INFECTION [None]
  - LEUKOCYTOSIS [None]
  - NORMOCHROMIC NORMOCYTIC ANAEMIA [None]
  - PHLEBITIS [None]
  - SUBCLAVIAN VEIN THROMBOSIS [None]
  - TENDERNESS [None]
  - UROSEPSIS [None]
